FAERS Safety Report 9659419 (Version 1)
Quarter: 2013Q4

REPORT INFORMATION
  Report Type: Report from Study
  Country: US (occurrence: US)
  Receive Date: 20131031
  Receipt Date: 20131031
  Transmission Date: 20140711
  Serious: Yes (Other)
  Sender: FDA-Public Use
  Company Number: US-CELGENEUS-163-21880-13104515

PATIENT
  Age: 78 Year
  Sex: Male
  Weight: 188 kg

DRUGS (3)
  1. REVLIMID [Suspect]
     Indication: PLASMA CELL MYELOMA
     Route: 048
  2. REVLIMID [Suspect]
     Dosage: INCREASED DOSE
     Route: 048
  3. REVLIMID [Suspect]
     Dosage: DECREASED DOSE
     Route: 048

REACTIONS (2)
  - Adverse drug reaction [Unknown]
  - Plasma cell myeloma [Unknown]
